FAERS Safety Report 4680035-4 (Version None)
Quarter: 2005Q2

REPORT INFORMATION
  Report Type: 
  Country: None (occurrence: None)
  Receive Date: 20050602
  Receipt Date: 20050512
  Transmission Date: 20051028
  Serious: Yes (Death, Hospitalization, Disabling)
  Sender: FDA-Public Use
  Company Number: HCM-0067

PATIENT
  Age: 65 Year
  Sex: Male

DRUGS (7)
  1. HYCAMTIN [Suspect]
     Indication: SMALL CELL LUNG CANCER STAGE UNSPECIFIED
     Dosage: 1.1MG PER DAY
     Route: 042
     Dates: start: 20030117, end: 20030119
  2. VEEN F [Concomitant]
     Dosage: 500ML PER DAY
     Dates: start: 20030117, end: 20030202
  3. METHYLPREDNISOLONE SODIUM SUCCINATE [Concomitant]
     Dates: start: 20030118, end: 20030125
  4. FLUID REPLACEMENT [Concomitant]
     Dosage: 1000ML PER DAY
     Dates: start: 20030117, end: 20030202
  5. ISOTONIC SODIUM CHLORIDE [Concomitant]
     Dosage: 400ML PER DAY
     Dates: start: 20030117, end: 20030128
  6. CEFOZOPRAN HYDROCHLORIDE [Concomitant]
     Dosage: 2G PER DAY
     Dates: start: 20030119, end: 20030123
  7. AMINOFLUID [Concomitant]
     Dosage: 500ML PER DAY
     Dates: start: 20030117, end: 20030213

REACTIONS (5)
  - BLOOD CHLORIDE DECREASED [None]
  - DISEASE PROGRESSION [None]
  - PLATELET COUNT DECREASED [None]
  - SMALL CELL LUNG CANCER STAGE UNSPECIFIED [None]
  - WHITE BLOOD CELL COUNT DECREASED [None]
